FAERS Safety Report 4263720-8 (Version None)
Quarter: 2004Q1

REPORT INFORMATION
  Report Type: 
  Country: None (occurrence: None)
  Receive Date: 20040102
  Receipt Date: 20031217
  Transmission Date: 20041129
  Serious: Yes (Hospitalization)
  Sender: FDA-Public Use
  Company Number: 2003SE05792

PATIENT
  Age: 55 Year
  Sex: Male
  Weight: 74 kg

DRUGS (5)
  1. SELO-ZOK [Suspect]
     Indication: VENTRICULAR HYPERTROPHY
     Dosage: 100 MG DAILY PO
     Route: 048
     Dates: start: 19870101
  2. SELO-ZOK [Suspect]
     Indication: VENTRICULAR HYPERTROPHY
     Dosage: 25 MG BID PO
     Route: 048
  3. BURINEX [Concomitant]
  4. MAREVAN [Concomitant]
  5. NORVASC [Concomitant]

REACTIONS (2)
  - ABSCESS [None]
  - FISTULA [None]
